FAERS Safety Report 7755325 (Version 8)
Quarter: 2013Q1

REPORT INFORMATION
  Report Type: Spontaneous
  Country: US (occurrence: US)
  Receive Date: 20110111
  Receipt Date: 20130315
  Transmission Date: 20140127
  Serious: Yes (Disabling, Other)
  Sender: FDA-Public Use
  Company Number: US-JNJFOC-20100805066

PATIENT
  Age: 60 Year
  Sex: Female
  Weight: 81.65 kg

DRUGS (2)
  1. NEUTROGENA T/GEL THERAPEUTIC SHAMPOO EXTRA STRENGTH FORMULA [Suspect]
     Indication: PSORIASIS
     Route: 061
     Dates: start: 20100804, end: 20100807
  2. NEUTROGENA T/GEL THERAPEUTIC SHAMPOO EXTRA STRENGTH FORMULA [Suspect]
     Indication: DANDRUFF
     Route: 061
     Dates: start: 20100804, end: 20100807

REACTIONS (13)
  - Gait disturbance [Unknown]
  - Seborrhoeic dermatitis [Unknown]
  - Hypersensitivity [Unknown]
  - Alopecia [Recovering/Resolving]
  - Deformity [Unknown]
  - Thermal burn [Unknown]
  - Scar [Unknown]
  - Rash maculo-papular [Unknown]
  - Thermal burn [Unknown]
  - Nerve injury [Unknown]
  - Acne [Recovered/Resolved]
  - Hypoaesthesia [Unknown]
  - Malaise [Unknown]
